FAERS Safety Report 9319459 (Version 1)
Quarter: 2013Q2

REPORT INFORMATION
  Report Type: Spontaneous
  Country: US (occurrence: US)
  Receive Date: 20130530
  Receipt Date: 20130530
  Transmission Date: 20140414
  Serious: No
  Sender: FDA-Public Use
  Company Number: US-GLAXOSMITHKLINE-A0984466A

PATIENT
  Age: 56 Year
  Sex: Female

DRUGS (2)
  1. FLOLAN [Suspect]
     Indication: PRODUCT USED FOR UNKNOWN INDICATION
     Dosage: 28.75NGKM CONTINUOUS
     Dates: start: 20081112
  2. FLOLAN DILUENT [Suspect]
     Indication: PRODUCT USED FOR UNKNOWN INDICATION

REACTIONS (11)
  - Wrong technique in drug usage process [Not Recovered/Not Resolved]
  - Wrong technique in drug usage process [Unknown]
  - Underdose [Unknown]
  - Feeling abnormal [Unknown]
  - Influenza like illness [Unknown]
  - Nausea [Unknown]
  - Feeling drunk [Unknown]
  - Malaise [Unknown]
  - Device leakage [Unknown]
  - Medical device complication [Unknown]
  - Device occlusion [Unknown]
